FAERS Safety Report 5910440-7 (Version None)
Quarter: 2008Q4

REPORT INFORMATION
  Report Type: 
  Country: None (occurrence: None)
  Receive Date: 20081006
  Receipt Date: 20081006
  Transmission Date: 20090506
  Serious: Yes (Other)
  Sender: FDA-Public Use
  Company Number: None

PATIENT
  Sex: Male
  Weight: 74.8435 kg

DRUGS (5)
  1. CHANTIX [Suspect]
     Indication: SMOKING CESSATION THERAPY
     Dosage: 1 MG BID PO
     Route: 048
     Dates: start: 20080905, end: 20080915
  2. METHADONE HCL [Concomitant]
  3. FLUDROCORTISONE ACETATE [Concomitant]
  4. MULTI-VITAMIN [Concomitant]
  5. ALPRAZOLAM [Concomitant]

REACTIONS (3)
  - HALLUCINATION, VISUAL [None]
  - INSOMNIA [None]
  - TREMOR [None]
